FAERS Safety Report 16403031 (Version 1)
Quarter: 2019Q2

REPORT INFORMATION
  Report Type: Spontaneous
  Country: US (occurrence: US)
  Receive Date: 20190607
  Receipt Date: 20190607
  Transmission Date: 20190711
  Serious: Yes (Hospitalization, Other)
  Sender: FDA-Public Use
  Company Number: US-ROCHE-2328984

PATIENT
  Age: 73 Year
  Sex: Female
  Weight: 48.53 kg

DRUGS (15)
  1. BONIVA [Suspect]
     Active Substance: IBANDRONATE SODIUM
     Indication: OSTEOPOROSIS
     Route: 065
     Dates: start: 200801, end: 2010
  2. ACTONEL [Suspect]
     Active Substance: RISEDRONATE SODIUM
     Route: 048
     Dates: start: 200511, end: 200801
  3. FOSAMAX [Suspect]
     Active Substance: ALENDRONATE SODIUM
     Indication: OSTEOPOROSIS
     Route: 048
     Dates: start: 1996, end: 200606
  4. NORVASC [Concomitant]
     Active Substance: AMLODIPINE BESYLATE
  5. ASPIRIN [ACETYLSALICYLIC ACID] [Concomitant]
     Active Substance: ASPIRIN
  6. ZOCOR [Concomitant]
     Active Substance: SIMVASTATIN
  7. TRAZODONE [Concomitant]
     Active Substance: TRAZODONE HYDROCHLORIDE
  8. ZOLOFT [Concomitant]
     Active Substance: SERTRALINE HYDROCHLORIDE
  9. ACTONEL [Suspect]
     Active Substance: RISEDRONATE SODIUM
     Route: 048
     Dates: start: 20081021
  10. FOSAMAX [Suspect]
     Active Substance: ALENDRONATE SODIUM
     Route: 048
     Dates: end: 20101103
  11. PREMARIN [Concomitant]
     Active Substance: ESTROGENS, CONJUGATED
  12. DYAZIDE [Concomitant]
     Active Substance: HYDROCHLOROTHIAZIDE\TRIAMTERENE
  13. GLUCOSAMINE AND CHONDROITIN [Concomitant]
     Active Substance: CHONDROITIN SULFATE (BOVINE)\GLUCOSAMINE HYDROCHLORIDE
  14. CALCIUM W/VITAMIN D3 [Concomitant]
     Active Substance: CALCIUM\CHOLECALCIFEROL
  15. ACTONEL [Suspect]
     Active Substance: RISEDRONATE SODIUM
     Indication: OSTEOPOROSIS
     Route: 048
     Dates: start: 200606, end: 200801

REACTIONS (23)
  - Low turnover osteopathy [Unknown]
  - Wound drainage [Recovered/Resolved]
  - Peripheral swelling [Recovered/Resolved]
  - Femur fracture [Recovered/Resolved]
  - Comminuted fracture [Recovered/Resolved]
  - Abscess limb [Recovered/Resolved]
  - Depression [Unknown]
  - Emotional distress [Unknown]
  - Postoperative wound infection [Recovered/Resolved]
  - Pyrexia [Recovered/Resolved]
  - Post procedural discharge [Recovered/Resolved]
  - Erythema [Recovered/Resolved]
  - Fracture delayed union [Recovered/Resolved]
  - Pain in extremity [Recovered/Resolved]
  - Fall [Unknown]
  - Osteomyelitis salmonella [Recovered/Resolved]
  - Salmonellosis [Recovered/Resolved]
  - Fracture displacement [Recovered/Resolved]
  - Osteomyelitis [Unknown]
  - Anxiety [Unknown]
  - Medical device site cellulitis [Recovered/Resolved]
  - Postoperative stitch sinus [Recovered/Resolved]
  - Stress fracture [Recovered/Resolved]

NARRATIVE: CASE EVENT DATE: 20080218
